FAERS Safety Report 8772776 (Version 1)
Quarter: 2012Q4

REPORT INFORMATION
  Report Type: 
  Country: US (occurrence: US)
  Receive Date: 20120907
  Receipt Date: 20120907
  Transmission Date: 20130627
  Serious: Yes (Other)
  Sender: FDA-Public Use
  Company Number: US-PFIZER INC-2012216589

PATIENT

DRUGS (1)
  1. DETROL [Suspect]
     Dosage: UNK

REACTIONS (7)
  - Bronchitis [Unknown]
  - Visual acuity reduced [Unknown]
  - Nervousness [Unknown]
  - Tooth disorder [Unknown]
  - Sinus disorder [Unknown]
  - Weight decreased [Unknown]
  - Drug ineffective [Unknown]
